FAERS Safety Report 4512423-0 (Version None)
Quarter: 2004Q4

REPORT INFORMATION
  Report Type: 
  Country: None (occurrence: None)
  Receive Date: 20041123
  Receipt Date: 20041109
  Transmission Date: 20050328
  Serious: Yes (Death)
  Sender: FDA-Public Use
  Company Number: B0356766A

PATIENT
  Sex: 0

DRUGS (7)
  1. ALKERAN [Suspect]
     Indication: NON-HODGKIN'S LYMPHOMA
     Dosage: 140 MG/M2/SEE TEXT
  2. CYTARABINE [Suspect]
     Indication: NON-HODGKIN'S LYMPHOMA
     Dosage: 200 MG/M2 SEE TEXT
  3. CARMUSTINE [Suspect]
     Indication: NON-HODGKIN'S LYMPHOMA
     Dosage: 300 MG/M2 SEE DOSAGE TEXT
  4. ETOPOSIDE [Suspect]
     Indication: NON-HODGKIN'S LYMPHOMA
     Dosage: 200 MG/M2 SEE IDOSAGE TEXT
  5. GRANULOCYTE COL.STIM.FACT [Concomitant]
  6. GRAN.MAC.COL.STIM.FACTOR [Concomitant]
  7. EPOGEN [Concomitant]

REACTIONS (1)
  - ASPERGILLOSIS [None]
